FAERS Safety Report 15432748 (Version 5)
Quarter: 2019Q1

REPORT INFORMATION
  Report Type: Report from Study
  Country: AT (occurrence: AT)
  Receive Date: 20180927
  Receipt Date: 20190121
  Transmission Date: 20190417
  Serious: Yes (Hospitalization)
  Sender: FDA-Public Use
  Company Number: AT-ROCHE-2188858

PATIENT
  Age: 58 Year
  Sex: Female
  Weight: 75 kg

DRUGS (22)
  1. SERACTIL [Concomitant]
     Active Substance: DEXIBUPROFEN
     Indication: MUSCULOSKELETAL PAIN
     Route: 065
     Dates: start: 20170919
  2. TAXOL [Suspect]
     Active Substance: PACLITAXEL
     Indication: HER-2 POSITIVE BREAST CANCER
     Dosage: MOST RECENT DOSE ON 06/JUN/2017
     Route: 042
     Dates: start: 20170321, end: 20170523
  3. XGEVA [Concomitant]
     Active Substance: DENOSUMAB
     Route: 065
     Dates: start: 20170613
  4. CITALOPRAM [Concomitant]
     Active Substance: CITALOPRAM HYDROBROMIDE
     Route: 065
  5. VERTIROSAN (AUSTRIA) [Concomitant]
     Route: 065
     Dates: start: 20171023
  6. NORGESIC (AUSTRIA) [Concomitant]
     Route: 065
  7. KREON [Concomitant]
     Active Substance: PANCRELIPASE
     Indication: GASTROENTERITIS RADIATION
     Route: 065
     Dates: start: 20180215
  8. NOVALGIN (AUSTRIA) [Concomitant]
     Indication: VOMITING
     Route: 065
     Dates: start: 20180909
  9. ZOFRAN [Concomitant]
     Active Substance: ONDANSETRON HYDROCHLORIDE
     Indication: SUBILEUS
     Route: 065
     Dates: start: 20170923
  10. ZOFRAN [Concomitant]
     Active Substance: ONDANSETRON HYDROCHLORIDE
     Route: 065
     Dates: start: 20180819, end: 20180819
  11. NOVALGIN (AUSTRIA) [Concomitant]
     Indication: ABDOMINAL PAIN UPPER
     Route: 065
     Dates: start: 20180425, end: 20180909
  12. TRASTUZUMAB. [Suspect]
     Active Substance: TRASTUZUMAB
     Indication: HER-2 POSITIVE BREAST CANCER
     Dosage: MOST RECENT DOSE ON 14/MAR/2018
     Route: 042
     Dates: start: 20170321, end: 20170523
  13. LYRICA [Concomitant]
     Active Substance: PREGABALIN
     Indication: MUSCULOSKELETAL PAIN
     Route: 065
     Dates: start: 20180129
  14. NEXIUM [Concomitant]
     Active Substance: ESOMEPRAZOLE MAGNESIUM
     Dosage: ONGOING = CHECKED
     Route: 065
     Dates: start: 20180115
  15. PERTUZUMAB. [Suspect]
     Active Substance: PERTUZUMAB
     Indication: HER-2 POSITIVE BREAST CANCER
     Dosage: MOST RECENT DOSE ON 14/MAR/2018
     Route: 042
     Dates: start: 20170321, end: 20170523
  16. GUTTALAX [Concomitant]
     Route: 065
     Dates: start: 20171023
  17. BIOFLORIN (AUSTRIA) [Concomitant]
     Route: 065
  18. MOLAXOLE [Concomitant]
     Active Substance: POLYETHYLENE GLYCOL 3350\POTASSIUM CHLORIDE\SODIUM BICARBONATE\SODIUM CHLORIDE
     Route: 065
     Dates: start: 20171023
  19. HALDOL [Concomitant]
     Active Substance: HALOPERIDOL
     Route: 065
     Dates: start: 20171023
  20. TRAMAL RETARD [Concomitant]
     Active Substance: TRAMADOL
     Route: 065
     Dates: start: 20180425
  21. NEXIUM [Concomitant]
     Active Substance: ESOMEPRAZOLE MAGNESIUM
     Indication: GASTROENTERITIS RADIATION
     Route: 065
     Dates: start: 20180819, end: 20180819
  22. CEOLAT [Concomitant]
     Route: 065

REACTIONS (6)
  - Somnolence [Recovered/Resolved]
  - Subileus [Recovered/Resolved]
  - Vertigo [Recovered/Resolved]
  - Vomiting [Recovered/Resolved]
  - Nausea [Recovered/Resolved]
  - Abdominal pain upper [Recovered/Resolved]

NARRATIVE: CASE EVENT DATE: 20180819
